FAERS Safety Report 25205661 (Version 3)
Quarter: 2025Q2

REPORT INFORMATION
  Report Type: Report from Study
  Country: US (occurrence: US)
  Receive Date: 20250417
  Receipt Date: 20250516
  Transmission Date: 20250717
  Serious: No
  Sender: DECIPHERA PHARMACEUTICALS
  Company Number: US-DECIPHERA PHARMACEUTICALS LLC-2025US000332

PATIENT
  Age: 41 Year
  Sex: Female

DRUGS (1)
  1. ROMVIMZA [Suspect]
     Active Substance: VIMSELTINIB
     Indication: Synovitis
     Dosage: 30 MILLIGRAM, TWICE WEEKLY
     Route: 048
     Dates: start: 20250331

REACTIONS (11)
  - Headache [Recovered/Resolved]
  - Formication [Recovering/Resolving]
  - Seasonal allergy [Unknown]
  - Bone neoplasm [Unknown]
  - Laboratory test abnormal [Unknown]
  - Blood calcium increased [Unknown]
  - Peripheral swelling [Unknown]
  - Fatigue [Unknown]
  - Pruritus [Recovering/Resolving]
  - Alanine aminotransferase increased [Unknown]
  - Aspartate aminotransferase increased [Unknown]

NARRATIVE: CASE EVENT DATE: 20250101
